FAERS Safety Report 14290216 (Version 6)
Quarter: 2018Q1

REPORT INFORMATION
  Report Type: Report from Study
  Country: US (occurrence: US)
  Receive Date: 20171215
  Receipt Date: 20180326
  Transmission Date: 20180509
  Serious: Yes (Other)
  Sender: FDA-Public Use
  Company Number: PHEH2017US040108

PATIENT
  Age: 72 Year
  Sex: Female

DRUGS (2)
  1. COSENTYX [Suspect]
     Active Substance: SECUKINUMAB
     Indication: PRODUCT USED FOR UNKNOWN INDICATION
     Dosage: UNK
     Route: 058
     Dates: start: 2016, end: 2017
  2. HUMIRA [Suspect]
     Active Substance: ADALIMUMAB
     Indication: PRODUCT USED FOR UNKNOWN INDICATION
     Dosage: UNK
     Route: 065
     Dates: start: 2017

REACTIONS (8)
  - Vertigo [Unknown]
  - Hypoacusis [Unknown]
  - Drug ineffective [Unknown]
  - Malaise [Unknown]
  - Musculoskeletal discomfort [Unknown]
  - Ear congestion [Unknown]
  - Back pain [Unknown]
  - Meniere^s disease [Unknown]

NARRATIVE: CASE EVENT DATE: 201708
